FAERS Safety Report 9919308 (Version 2)
Quarter: 2014Q1

REPORT INFORMATION
  Report Type: Spontaneous
  Country: IT (occurrence: IT)
  Receive Date: 20140224
  Receipt Date: 20140328
  Transmission Date: 20141002
  Serious: Yes (Hospitalization)
  Sender: FDA-Public Use
  Company Number: IT-MERCK-1402ITA009640

PATIENT
  Age: 72 Year
  Sex: Male
  Weight: 80 kg

DRUGS (6)
  1. PEGINTRON [Suspect]
     Indication: ACUTE HIV INFECTION
     Dosage: 120 MICROGRAM, QW
     Route: 058
     Dates: start: 201204, end: 201205
  2. PEGINTRON [Suspect]
     Indication: HEPATITIS C
  3. COPEGUS [Suspect]
     Indication: ACUTE HIV INFECTION
     Dosage: 1200 MG/DAY
     Route: 048
     Dates: start: 201204, end: 201205
  4. COPEGUS [Suspect]
     Indication: HEPATITIS C
     Dosage: 1000 MG/DAY
     Route: 048
     Dates: start: 2012, end: 201205
  5. TELAPREVIR [Suspect]
     Indication: ACUTE HIV INFECTION
     Dosage: 2250 MG/DAY
     Route: 048
     Dates: start: 201204, end: 201205
  6. TELAPREVIR [Suspect]
     Indication: HEPATITIS C

REACTIONS (3)
  - Packed red blood cell transfusion [Unknown]
  - Fatigue [Recovered/Resolved]
  - Anaemia [Recovered/Resolved]
